FAERS Safety Report 9083527 (Version 1)
Quarter: 2013Q1

REPORT INFORMATION
  Report Type: Report from Study
  Country: US (occurrence: US)
  Receive Date: 20130130
  Receipt Date: 20130130
  Transmission Date: 20140127
  Serious: No
  Sender: FDA-Public Use
  Company Number: US-ABBOTT-12P-163-0932346-00

PATIENT
  Age: 59 Year
  Sex: Female
  Weight: 56.3 kg

DRUGS (8)
  1. HUMIRA 40 MG/0.8 ML PEN [Suspect]
     Indication: RHEUMATOID ARTHRITIS
     Dates: start: 20120419
  2. HUMIRA 40 MG/0.8 ML PEN [Suspect]
     Dates: start: 201202
  3. SYNTHROID [Concomitant]
     Indication: AUTOIMMUNE THYROIDITIS
     Dosage: PATIENT THINKS IT^S 100MCG DAILY
  4. SYNTHROID [Concomitant]
     Indication: BASEDOW^S DISEASE
  5. VITAMIN B12 [Concomitant]
     Indication: PRODUCT USED FOR UNKNOWN INDICATION
     Dosage: PRESCRIPTION STRENGTH
  6. VITAMIN D [Concomitant]
     Indication: VITAMIN D DECREASED
  7. OPANA [Concomitant]
     Indication: PAIN
  8. FLEXERIL [Concomitant]
     Indication: PAIN

REACTIONS (9)
  - Fatigue [Not Recovered/Not Resolved]
  - Sneezing [Recovering/Resolving]
  - Cough [Not Recovered/Not Resolved]
  - Cough [Not Recovered/Not Resolved]
  - Chest discomfort [Not Recovered/Not Resolved]
  - Sinusitis [Recovered/Resolved]
  - Oropharyngeal pain [Recovered/Resolved]
  - Nasal congestion [Recovered/Resolved]
  - Ear pain [Recovered/Resolved]
